FAERS Safety Report 5097746-1 (Version None)
Quarter: 2006Q3

REPORT INFORMATION
  Report Type: 
  Country: None (occurrence: None)
  Receive Date: 20060905
  Receipt Date: 20060822
  Transmission Date: 20061208
  Serious: Yes (Hospitalization)
  Sender: FDA-Public Use
  Company Number: B0404009A

PATIENT
  Age: 69 Year
  Sex: Female
  Weight: 34.927 kg

DRUGS (3)
  1. AMOXIL [Suspect]
     Indication: HELICOBACTER INFECTION
     Dosage: PER DAY
     Dates: start: 20050307
  2. LANSOPRAZOLE [Concomitant]
  3. CLARITHROMYCIN [Concomitant]

REACTIONS (4)
  - CLOSTRIDIUM DIFFICILE TOXIN TEST POSITIVE [None]
  - GASTRITIS [None]
  - INAPPROPRIATE SCHEDULE OF DRUG ADMINISTRATION [None]
  - PSEUDOMEMBRANOUS COLITIS [None]
